FAERS Safety Report 5453869-6 (Version None)
Quarter: 2007Q3

REPORT INFORMATION
  Report Type: 
  Country: None (occurrence: None)
  Receive Date: 20070917
  Receipt Date: 20070910
  Transmission Date: 20080115
  Serious: Yes (Hospitalization)
  Sender: FDA-Public Use
  Company Number: B0486180A

PATIENT
  Age: 54 Year
  Sex: Female
  Weight: 70 kg

DRUGS (2)
  1. LAPATINIB [Suspect]
     Dosage: 750MG PER DAY
     Route: 048
     Dates: start: 20070123
  2. CAPECITABINE [Suspect]
     Dosage: 2000MG PER DAY
     Route: 048
     Dates: start: 20070123

REACTIONS (3)
  - DEEP VEIN THROMBOSIS [None]
  - FIBRIN D DIMER INCREASED [None]
  - PLEURITIC PAIN [None]
